FAERS Safety Report 9521679 (Version 1)
Quarter: 2013Q1

REPORT INFORMATION
  Report Type: Spontaneous
  Country: US (occurrence: None)
  Receive Date: 20130305
  Receipt Date: 20130305
  Transmission Date: 20140127
  Serious: Yes (Other)
  Sender: FDA-Public Use
  Company Number: 163-21880-12030058

PATIENT
  Age: 72 Year
  Sex: Female

DRUGS (5)
  1. REVLIMID [Suspect]
     Indication: PLASMA CELL MYELOMA
     Dosage: 10 MG, 1 IN 1 D, PO?
     Route: 048
     Dates: start: 201008
  2. VALTREX (VALACICLOVIR HYDROCHLORIDE) (UNKNOWN) [Concomitant]
  3. SYNTHROID (LEVOTHYROXINE SODIUM) (UNKNOWN) [Concomitant]
  4. LISINOPRIL (LISINOPRIL) (UNKNOWN)? [Concomitant]
  5. ZOMETA (ZOLEDRONIC ACID) (UNKNOWN)? [Concomitant]

REACTIONS (2)
  - Rib fracture [None]
  - Pruritus [None]
